FAERS Safety Report 15103501 (Version 1)
Quarter: 2018Q3

REPORT INFORMATION
  Report Type: Spontaneous
  Country: US (occurrence: US)
  Receive Date: 20180703
  Receipt Date: 20180703
  Transmission Date: 20181010
  Serious: No
  Sender: FDA-Public Use
  Company Number: US-SHIRE-US201823054

PATIENT

DRUGS (3)
  1. XIIDRA [Suspect]
     Active Substance: LIFITEGRAST
     Indication: DRY EYE
  2. ANTIHISTAMINE ALLERGY RELIEF [Concomitant]
     Indication: HYPERSENSITIVITY
  3. XIIDRA [Suspect]
     Active Substance: LIFITEGRAST
     Indication: HYPERSENSITIVITY
     Dosage: 1 GTT, 2X/DAY:BID
     Route: 047

REACTIONS (1)
  - Drug ineffective [Unknown]
